FAERS Safety Report 10161885 (Version 1)
Quarter: 2014Q2

REPORT INFORMATION
  Report Type: Spontaneous
  Country: US (occurrence: None)
  Receive Date: 20140507
  Receipt Date: 20140507
  Transmission Date: 20141212
  Serious: Yes (Hospitalization)
  Sender: FDA-Public Use
  Company Number: UTC-047934

PATIENT
  Age: 82 Year
  Sex: Female
  Weight: 72.57 kg

DRUGS (3)
  1. TYVASO (0.6 MILLIGRAM/MILLILITERS, AEROSOL FOR INHALATION) (TREPROSTINIL SODIUM)? [Suspect]
     Indication: PULMONARY ARTERIAL HYPERTENSION
     Dosage: 54 - 72 MCG (3 IN 1 D), INHALATION ?
     Route: 055
     Dates: start: 20101014
  2. COUMADIN (WARFARIN SODIUM) [Concomitant]
  3. LETAIRIS (AMBRISENTAN) [Concomitant]

REACTIONS (2)
  - Urosepsis [None]
  - Drug dose omission [None]
